FAERS Safety Report 5409155-3 (Version None)
Quarter: 2007Q3

REPORT INFORMATION
  Report Type: 
  Country: None (occurrence: None)
  Receive Date: 20070713
  Receipt Date: 20070426
  Transmission Date: 20080115
  Serious: Yes (Other)
  Sender: FDA-Public Use
  Company Number: US-JNJFOC-20070205034

PATIENT
  Age: 45 Year
  Sex: Female
  Weight: 77.1115 kg

DRUGS (5)
  1. ORTHO EVRA [Suspect]
     Indication: CONTRACEPTION
     Dosage: 1 DOSE(S), 3 IN 4 WEEK, TRANSDERMAL
     Route: 062
     Dates: start: 20021101, end: 20041228
  2. CHROMAGEN FA (CHROMAGEN) UNSPECIFIED [Concomitant]
  3. DAYPRO (OXAPROZIN) UNSPECIFIED [Concomitant]
  4. METHOTREXATE (METHOTREXATE) TABLET [Concomitant]
  5. PREDNISONE (PREDNISONE) UNSPECIFIED [Concomitant]

REACTIONS (3)
  - CEREBROVASCULAR ACCIDENT [None]
  - DEEP VEIN THROMBOSIS [None]
  - PULMONARY EMBOLISM [None]
